FAERS Safety Report 16236871 (Version 1)
Quarter: 2019Q2

REPORT INFORMATION
  Report Type: Spontaneous
  Country: GB (occurrence: GB)
  Receive Date: 20190425
  Receipt Date: 20190425
  Transmission Date: 20190711
  Serious: Yes (Disabling, Other)
  Sender: FDA-Public Use
  Company Number: GB-ACCORD-123646

PATIENT
  Age: 60 Year
  Sex: Male
  Weight: 86 kg

DRUGS (6)
  1. AMLODIPINE ACCORD HEATHCARE [Suspect]
     Active Substance: AMLODIPINE BESYLATE
     Indication: HYPERTENSION
     Route: 048
     Dates: start: 20181206, end: 20181209
  2. CODEINE [Concomitant]
     Active Substance: CODEINE
  3. LOSARTAN. [Concomitant]
     Active Substance: LOSARTAN
  4. FLUOXETINE [Concomitant]
     Active Substance: FLUOXETINE HYDROCHLORIDE
  5. ATORVASTATIN [Concomitant]
     Active Substance: ATORVASTATIN
  6. NEBIVOLOL. [Concomitant]
     Active Substance: NEBIVOLOL

REACTIONS (8)
  - Palpitations [Recovered/Resolved]
  - Fatigue [Recovered/Resolved]
  - Decreased appetite [Recovered/Resolved]
  - Diarrhoea [Recovered/Resolved]
  - Nausea [Recovered/Resolved]
  - Taste disorder [Recovered/Resolved]
  - Agitation [Recovered/Resolved]
  - Tremor [Recovered/Resolved]

NARRATIVE: CASE EVENT DATE: 20181206
